FAERS Safety Report 18763188 (Version 1)
Quarter: 2021Q1

REPORT INFORMATION
  Report Type: Spontaneous
  Country: US (occurrence: US)
  Receive Date: 20210120
  Receipt Date: 20210120
  Transmission Date: 20210419
  Serious: No
  Sender: FDA-Public Use
  Company Number: US-PFIZER INC-2020091650

PATIENT
  Age: 43 Year
  Sex: Male
  Weight: 79.83 kg

DRUGS (3)
  1. DEPAKOTE [Concomitant]
     Active Substance: DIVALPROEX SODIUM
     Dosage: UNK
  2. DILANTIN [Suspect]
     Active Substance: PHENYTOIN
     Indication: EPILEPSY
     Dosage: 100 MG, UNK
  3. DILANTIN [Suspect]
     Active Substance: PHENYTOIN
     Indication: SEIZURE
     Dosage: 500 MG, DAILY(SIG: TAKE 3 CAPSULES BY MOUTH EVERY MORNING + 2 CAPSULES BY MOUTH EVERY EVENING)
     Route: 048

REACTIONS (1)
  - Weight fluctuation [Unknown]
